FAERS Safety Report 5507786-3 (Version None)
Quarter: 2007Q4

REPORT INFORMATION
  Report Type: 
  Country: None (occurrence: None)
  Receive Date: 20071102
  Receipt Date: 20071025
  Transmission Date: 20080405
  Serious: Yes (Disabling, Other)
  Sender: FDA-Public Use
  Company Number: DSU-2007-00800

PATIENT
  Age: 71 Year
  Sex: Female
  Weight: 60 kg

DRUGS (3)
  1. OLMESARTAN (OLMESARTAN) (20 MILLIGRAM, TABLET) (OLMESARTAN) [Suspect]
     Indication: HYPERTENSION
     Dosage: 20 MG (20 MG, QD), PER ORAL
     Route: 048
  2. MELOXICAM (MELOXICAM) (MELOXICAM) [Concomitant]
  3. HIGROTON (CHLORTALDONE) (CHLORTALIDONE) [Concomitant]

REACTIONS (4)
  - GAIT DISTURBANCE [None]
  - LIPOMA [None]
  - OSTEOARTHRITIS [None]
  - WALKING AID USER [None]
